FAERS Safety Report 6604783-1 (Version None)
Quarter: 2010Q1

REPORT INFORMATION
  Report Type: 
  Country: None (occurrence: None)
  Receive Date: 20100226
  Receipt Date: 20100122
  Transmission Date: 20100710
  Serious: No
  Sender: FDA-Public Use
  Company Number: US-BRISTOL-MYERS SQUIBB COMPANY-14945497

PATIENT
  Sex: Female

DRUGS (3)
  1. ONGLYZA [Suspect]
     Indication: DIABETES MELLITUS
  2. ACTOS [Concomitant]
  3. INSULIN [Concomitant]

REACTIONS (1)
  - MYALGIA [None]
